FAERS Safety Report 5787421-X (Version None)
Quarter: 2008Q2

REPORT INFORMATION
  Report Type: 
  Country: None (occurrence: None)
  Receive Date: 20080625
  Receipt Date: 20080620
  Transmission Date: 20081010
  Serious: Yes (Hospitalization)
  Sender: FDA-Public Use
  Company Number: CA-ASTRAZENECA-2008UW10062

PATIENT
  Age: 7953 Day
  Sex: Male

DRUGS (9)
  1. SEROQUEL XR [Suspect]
     Indication: SCHIZOPHRENIA
     Dosage: 300 MG
     Route: 048
     Dates: start: 20080319
  2. SEROQUEL XR [Suspect]
     Dosage: 600 MG
     Route: 048
     Dates: start: 20080320
  3. SEROQUEL XR [Suspect]
     Dosage: 1000 MG
     Route: 048
     Dates: start: 20080513
  4. ZYPREXA [Concomitant]
     Indication: SCHIZOPHRENIA
     Route: 048
     Dates: end: 20080321
  5. ZYPREXA [Concomitant]
     Route: 048
     Dates: start: 20080322, end: 20080325
  6. ZYPREXA [Concomitant]
     Route: 048
     Dates: start: 20080326, end: 20080328
  7. ZYPREXA [Concomitant]
     Route: 048
     Dates: start: 20080329, end: 20080331
  8. ATIVAN [Concomitant]
     Indication: ANXIETY
     Route: 048
     Dates: end: 20080513
  9. CEPACOL LOZENGES [Concomitant]
     Indication: PHARYNGOLARYNGEAL PAIN
     Route: 048
     Dates: start: 20080320, end: 20080326

REACTIONS (2)
  - PSYCHOTIC DISORDER [None]
  - SUICIDAL IDEATION [None]
